FAERS Safety Report 25101445 (Version 1)
Quarter: 2025Q1

REPORT INFORMATION
  Report Type: Spontaneous
  Country: US (occurrence: US)
  Receive Date: 20250320
  Receipt Date: 20250320
  Transmission Date: 20250408
  Serious: Yes (Disabling, Other)
  Sender: AMGEN
  Company Number: US-AMGEN-USASP2025050920

PATIENT
  Age: 70 Year
  Sex: Female

DRUGS (1)
  1. REPATHA [Suspect]
     Active Substance: EVOLOCUMAB
     Indication: Blood cholesterol increased
     Dosage: 140 MILLIGRAM, Q2WK
     Route: 065
     Dates: start: 202406, end: 202409

REACTIONS (7)
  - Brain fog [Recovered/Resolved]
  - Myalgia [Recovered/Resolved]
  - Coronary artery occlusion [Unknown]
  - Injection site urticaria [Recovered/Resolved]
  - Injection site pain [Unknown]
  - Somnolence [Unknown]
  - Therapy cessation [Unknown]

NARRATIVE: CASE EVENT DATE: 20240901
